FAERS Safety Report 8934489 (Version 1)
Quarter: 2012Q4

REPORT INFORMATION
  Report Type: 
  Country: US (occurrence: US)
  Receive Date: 20121129
  Receipt Date: 20121129
  Transmission Date: 20130627
  Serious: No
  Sender: FDA-Public Use
  Company Number: US-GLAXOSMITHKLINE-A0951553A

PATIENT
  Age: 64 Year
  Sex: Female

DRUGS (3)
  1. FLOVENT [Suspect]
     Indication: CHRONIC OBSTRUCTIVE PULMONARY DISEASE
     Dosage: 2PUFF Twice per day
     Route: 055
     Dates: start: 201101
  2. SINGULAIR [Concomitant]
  3. OTHER MEDICATIONS [Concomitant]

REACTIONS (1)
  - Drug ineffective [Not Recovered/Not Resolved]
